FAERS Safety Report 10147890 (Version 2)
Quarter: 2014Q2

REPORT INFORMATION
  Report Type: Spontaneous
  Country: US (occurrence: US)
  Receive Date: 20140501
  Receipt Date: 20140514
  Transmission Date: 20141212
  Serious: Yes (Other)
  Sender: FDA-Public Use
  Company Number: US-AMGEN-USASP2014025584

PATIENT
  Age: 50 Year
  Sex: Female
  Weight: 81.63 kg

DRUGS (5)
  1. ENBREL [Suspect]
     Indication: RHEUMATOID ARTHRITIS
     Dosage: 50 MG, QWK
     Route: 058
     Dates: start: 20130926, end: 20140123
  2. METHOTREXATE [Concomitant]
     Dosage: 20 MG, QWK
     Route: 048
  3. FOLIC ACID [Concomitant]
     Dosage: 1 MG, QD
     Route: 048
  4. LEFLUNOMIDE [Concomitant]
     Dosage: 20 MG, QD
     Route: 048
  5. PREDNISONE [Concomitant]
     Dosage: 20 MG P.O, DAILY, AND THEN TAPER IT DOWN TO 10 MG ONCE

REACTIONS (9)
  - Pulmonary mass [Unknown]
  - Arthralgia [Unknown]
  - Chest discomfort [Recovered/Resolved]
  - Dyspnoea [Recovered/Resolved]
  - Musculoskeletal stiffness [Unknown]
  - Musculoskeletal pain [Unknown]
  - Joint range of motion decreased [Unknown]
  - Joint crepitation [Unknown]
  - Synovitis [Unknown]
